FAERS Safety Report 4390237-2 (Version None)
Quarter: 2004Q2

REPORT INFORMATION
  Report Type: 
  Country: None (occurrence: None)
  Receive Date: 20040630
  Receipt Date: 20040621
  Transmission Date: 20050107
  Serious: Yes (Other)
  Sender: FDA-Public Use
  Company Number: 2004220225US

PATIENT
  Age: 53 Year
  Sex: Female
  Weight: 102.9 kg

DRUGS (2)
  1. BEXTRA [Suspect]
     Indication: JOINT SWELLING
     Dosage: 20 MG, BID, ORAL
     Route: 048
     Dates: start: 20040329, end: 20040101
  2. CORTISONE [Concomitant]

REACTIONS (17)
  - APHAGIA [None]
  - BLOOD POTASSIUM DECREASED [None]
  - CIRCULATORY COLLAPSE [None]
  - DIARRHOEA [None]
  - DYSPEPSIA [None]
  - DYSPHAGIA [None]
  - GASTRIC PERFORATION [None]
  - INFECTION [None]
  - NAUSEA [None]
  - OBSTRUCTIVE AIRWAYS DISORDER [None]
  - OEDEMA PERIPHERAL [None]
  - OESOPHAGEAL OBSTRUCTION [None]
  - OESOPHAGEAL ULCER [None]
  - POLLAKIURIA [None]
  - PRURITUS GENERALISED [None]
  - VOMITING [None]
  - WEIGHT DECREASED [None]
